FAERS Safety Report 4286190-2 (Version None)
Quarter: 2004Q1

REPORT INFORMATION
  Report Type: 
  Country: None (occurrence: None)
  Receive Date: 20040115
  Receipt Date: 20030311
  Transmission Date: 20041129
  Serious: Yes (Other)
  Sender: FDA-Public Use
  Company Number: 2003151421US

PATIENT
  Age: 36 Year
  Sex: Male

DRUGS (1)
  1. ROGAINE [Suspect]
     Indication: ALOPECIA
     Dosage: UNK, UNK, TOPICAL
     Route: 061
     Dates: start: 20021101, end: 20021101

REACTIONS (1)
  - HYPERSENSITIVITY [None]
